FAERS Safety Report 10537659 (Version 1)
Quarter: 2014Q4

REPORT INFORMATION
  Report Type: Spontaneous
  Country: FR (occurrence: None)
  Receive Date: 20141021
  Receipt Date: 20141021
  Transmission Date: 20150529
  Serious: Yes (Life-Threatening)
  Sender: FDA-Public Use
  Company Number: FK201404125

PATIENT
  Age: 51 Year
  Sex: Female

DRUGS (1)
  1. INTRALIPID [Suspect]
     Active Substance: EGG PHOSPHOLIPIDS\GLYCERIN\SOYBEAN OIL
     Indication: TOXICITY TO VARIOUS AGENTS
     Dosage: 1 IN 18 HR
     Route: 042

REACTIONS (4)
  - Blood triglycerides increased [None]
  - Acute respiratory distress syndrome [None]
  - Toxicity to various agents [None]
  - Overdose [None]
